FAERS Safety Report 7199228-X (Version None)
Quarter: 2010Q4

REPORT INFORMATION
  Report Type: 
  Country: None (occurrence: None)
  Receive Date: 20101228
  Receipt Date: 20101222
  Transmission Date: 20110411
  Serious: Yes (Life-Threatening, Hospitalization, Disabling)
  Sender: FDA-Public Use
  Company Number: CH-ASTELLAS-2010EU006853

PATIENT
  Sex: Female

DRUGS (7)
  1. PROGRAF [Suspect]
     Indication: RENAL TRANSPLANT
     Dosage: 3.5 MG, UID/QD
     Route: 048
     Dates: start: 20000817, end: 20100927
  2. PREDNISONE [Concomitant]
     Indication: RENAL TRANSPLANT
     Dosage: 5 MG, UID/QD
     Route: 048
     Dates: start: 20000101
  3. CELLCEPT [Concomitant]
     Indication: RENAL TRANSPLANT
     Dosage: 500 MG, TID
     Route: 048
     Dates: start: 20000101
  4. CIPRALEX [Concomitant]
     Indication: AFFECTIVE DISORDER
     Dosage: 15 MG, UID/QD
     Route: 048
     Dates: start: 20050101
  5. PANTOZAL [Concomitant]
     Dosage: 40 MG, UID/QD
     Route: 048
     Dates: start: 20000101
  6. LIVIAL [Concomitant]
     Dosage: 2.5 MG, UID/QD
     Route: 048
  7. CALCIMAGON-D 3 [Concomitant]
     Indication: PROPHYLACTIC CHEMOTHERAPY
     Dosage: UNK
     Route: 048
     Dates: start: 20000101

REACTIONS (2)
  - DEMYELINATING POLYNEUROPATHY [None]
  - NERVE ROOT LESION [None]
